FAERS Safety Report 25575829 (Version 2)
Quarter: 2025Q3

REPORT INFORMATION
  Report Type: Spontaneous
  Country: EU (occurrence: EU)
  Receive Date: 20250718
  Receipt Date: 20250922
  Transmission Date: 20251021
  Serious: Yes (Other)
  Sender: ROCHE
  Company Number: EU-002147023-NVSC2025PT110806

PATIENT
  Age: 78 Year
  Sex: Female

DRUGS (1)
  1. RANIBIZUMAB [Suspect]
     Active Substance: RANIBIZUMAB
     Indication: Neovascular age-related macular degeneration
     Dosage: UNK, QMO
     Route: 050

REACTIONS (5)
  - Foveal degeneration [Unknown]
  - Intraocular pressure increased [Unknown]
  - Hyphaema [Unknown]
  - Retinal haemorrhage [Recovered/Resolved]
  - Macular fibrosis [Not Recovered/Not Resolved]
